FAERS Safety Report 9978061 (Version 1)
Quarter: 2014Q1

REPORT INFORMATION
  Report Type: Spontaneous
  Country: US (occurrence: US)
  Receive Date: 20140306
  Receipt Date: 20140306
  Transmission Date: 20141002
  Serious: No
  Sender: FDA-Public Use
  Company Number: US-PFIZER INC-2014061742

PATIENT
  Sex: Female

DRUGS (8)
  1. ERYTHROMYCIN [Suspect]
     Dosage: UNK
  2. COVERA-HS [Suspect]
     Dosage: UNK
  3. GENTAMICIN SULFATE [Suspect]
     Dosage: UNK
  4. DURATUSS [Suspect]
     Dosage: UNK
  5. DIOVANE [Suspect]
     Dosage: UNK
  6. MONOPRIL [Suspect]
     Dosage: UNK
  7. CODEINE [Suspect]
     Dosage: UNK
  8. TRIPLE ANTIBIOTIC OINTMENT [Suspect]
     Dosage: UNK

REACTIONS (1)
  - Drug hypersensitivity [Unknown]
